APPROVED DRUG PRODUCT: ALDARA
Active Ingredient: IMIQUIMOD
Strength: 5% **Federal Register determination that product was not discontinued or withdrawn for safety or effectiveness reasons**
Dosage Form/Route: CREAM;TOPICAL
Application: N020723 | Product #001
Applicant: BAUSCH HEALTH US LLC
Approved: Feb 27, 1997 | RLD: Yes | RS: No | Type: DISCN